FAERS Safety Report 4643287-2 (Version None)
Quarter: 2005Q2

REPORT INFORMATION
  Report Type: 
  Country: None (occurrence: None)
  Receive Date: 20050422
  Receipt Date: 20050413
  Transmission Date: 20051028
  Serious: Yes (Hospitalization)
  Sender: FDA-Public Use
  Company Number: 200511380BCC

PATIENT
  Age: 59 Year
  Sex: Male
  Weight: 113.3993 kg

DRUGS (5)
  1. ORIGIONAL AKLA-SELTZER TABLETS [Suspect]
     Dosage: 5200 MG, TOTAL DAILY, ORAL
     Route: 048
     Dates: start: 20050301
  2. METFORMIN HCL [Concomitant]
  3. SIMVASTATIN [Concomitant]
  4. OMEPRAZOLE [Concomitant]
  5. GENERIC FERROUS SULFATE [Concomitant]

REACTIONS (1)
  - BLOOD COUNT ABNORMAL [None]
